FAERS Safety Report 9222025 (Version 3)
Quarter: 2013Q2

REPORT INFORMATION
  Report Type: Spontaneous
  Country: US (occurrence: US)
  Receive Date: 20130410
  Receipt Date: 20130617
  Transmission Date: 20140414
  Serious: No
  Sender: FDA-Public Use
  Company Number: US-PFIZER INC-2013112516

PATIENT
  Age: 70 Year
  Sex: Female
  Weight: 86.17 kg

DRUGS (5)
  1. LYRICA [Suspect]
     Indication: FIBROMYALGIA
     Dosage: 300 MG, 1X/DAY
     Route: 048
     Dates: start: 2008, end: 201212
  2. HYDROCODONE [Concomitant]
     Indication: ARTHRITIS
     Dosage: UNK
  3. COUMADINE [Concomitant]
     Dosage: UNK
  4. PAXIL [Concomitant]
     Dosage: UNK
  5. ESGIC-PLUS [Concomitant]
     Dosage: UNK, AS NEEDED

REACTIONS (6)
  - Withdrawal syndrome [Recovered/Resolved]
  - Influenza like illness [Recovered/Resolved]
  - Nausea [Recovered/Resolved]
  - Tremor [Recovered/Resolved]
  - Feeling jittery [Recovered/Resolved]
  - Feeling abnormal [Recovered/Resolved]
